FAERS Safety Report 17681840 (Version 3)
Quarter: 2020Q3

REPORT INFORMATION
  Report Type: Spontaneous
  Country: US (occurrence: US)
  Receive Date: 20200417
  Receipt Date: 20200902
  Transmission Date: 20201102
  Serious: Yes (Other)
  Sender: FDA-Public Use
  Company Number: US-AUROBINDO-AUR-APL-2020-017969

PATIENT
  Sex: Female
  Weight: 65.3 kg

DRUGS (1)
  1. GABAPENTIN CAPSULES 300 MG [Suspect]
     Active Substance: GABAPENTIN
     Indication: PAIN
     Dosage: 600 MILLIGRAM, ONCE A DAY
     Route: 048
     Dates: start: 20200304

REACTIONS (9)
  - Arthralgia [Unknown]
  - Product use in unapproved indication [Unknown]
  - Pain in extremity [Unknown]
  - Hemiparesis [Unknown]
  - Insomnia [Unknown]
  - Paraesthesia [Unknown]
  - Coccydynia [Unknown]
  - Joint swelling [Unknown]
  - Peripheral swelling [Unknown]
